FAERS Safety Report 12136311 (Version 1)
Quarter: 2016Q1

REPORT INFORMATION
  Report Type: Spontaneous
  Country: US (occurrence: None)
  Receive Date: 20160301
  Receipt Date: 20160301
  Transmission Date: 20160526
  Serious: Yes (Other)
  Sender: FDA-Public Use
  Company Number: None

PATIENT
  Age: 63 Year
  Sex: Female
  Weight: 122.47 kg

DRUGS (16)
  1. PANTOPRAZOLE SODIUM. [Concomitant]
     Active Substance: PANTOPRAZOLE SODIUM
  2. WHEELCHAIR [Concomitant]
     Active Substance: DEVICE
  3. VIT D-3 [Concomitant]
  4. BETHANECHOL 25MG TAB UPSHER [Suspect]
     Active Substance: BETHANECHOL
     Indication: URINARY TRACT DISORDER
     Dosage: 25 MG 1 3 DAILY MOUTH
     Route: 048
     Dates: start: 20150707, end: 20150805
  5. GABAPENTIN. [Concomitant]
     Active Substance: GABAPENTIN
  6. FERROUS SULFATE [Concomitant]
     Active Substance: FERROUS SULFATE\FERROUS SULFATE, DRIED
  7. STOOL SOFTENER [Concomitant]
     Active Substance: DOCUSATE CALCIUM
  8. IRON 65 [Concomitant]
  9. GAS-X [Concomitant]
     Active Substance: DIMETHICONE
  10. METFORMIN [Concomitant]
     Active Substance: METFORMIN HYDROCHLORIDE
  11. CRANBERRY ALEVE [Concomitant]
  12. HUMALOG [Concomitant]
     Active Substance: INSULIN LISPRO
  13. LOW DOSE ASPIRIN [Concomitant]
     Active Substance: ASPIRIN
  14. VIT B-12 [Concomitant]
  15. LEVEMIR [Concomitant]
     Active Substance: INSULIN DETEMIR
  16. TRIMETHOPRIM. [Concomitant]
     Active Substance: TRIMETHOPRIM

REACTIONS (2)
  - Diplopia [None]
  - Headache [None]

NARRATIVE: CASE EVENT DATE: 20150727
